FAERS Safety Report 7444703-3 (Version None)
Quarter: 2011Q2

REPORT INFORMATION
  Report Type: 
  Country: None (occurrence: None)
  Receive Date: 20110429
  Receipt Date: 20110426
  Transmission Date: 20111010
  Serious: Yes (Other)
  Sender: FDA-Public Use
  Company Number: US-PFIZER INC-2010082963

PATIENT
  Sex: Female

DRUGS (4)
  1. CHANTIX [Suspect]
     Indication: SMOKING CESSATION THERAPY
     Dosage: UNK
     Dates: start: 20080801, end: 20080101
  2. ZOLPIDEM [Concomitant]
     Dosage: UNK
  3. VENTOLIN [Concomitant]
     Indication: ASTHMA
     Dosage: UNK
     Dates: start: 20001231, end: 20101101
  4. WELLBUTRIN [Concomitant]
     Indication: DEPRESSION
     Dosage: UNK
     Dates: start: 20050101

REACTIONS (5)
  - DEPRESSION [None]
  - PANIC ATTACK [None]
  - SUICIDAL IDEATION [None]
  - MENTAL DISORDER [None]
  - ANXIETY [None]
